FAERS Safety Report 7955499 (Version 2)
Quarter: 2017Q4

REPORT INFORMATION
  Report Type: Spontaneous
  Country: LU (occurrence: LU)
  Receive Date: 20110523
  Receipt Date: 20171013
  Transmission Date: 20180321
  Serious: Yes (Death)
  Sender: FDA-Public Use
  Company Number: LU-ASTRAZENECA-2011SE29783

PATIENT
  Sex: Female

DRUGS (2)
  1. SEROQUEL [Suspect]
     Active Substance: QUETIAPINE FUMARATE
     Dosage: 10 TABLETS OF 100 MG, 130 TABLETS OF 200 MG
     Route: 048
     Dates: start: 201105, end: 201105
  2. DOMINAL (PROTHIPENDYL HYDROCHLORIDE) [Suspect]
     Active Substance: PROTHIPENDYL HYDROCHLORIDE
     Dosage: 30 TABLETS OF 200 MG

REACTIONS (1)
  - Completed suicide [Fatal]

NARRATIVE: CASE EVENT DATE: 201105
